FAERS Safety Report 23225527 (Version 2)
Quarter: 2024Q2

REPORT INFORMATION
  Report Type: Spontaneous
  Country: CA (occurrence: CA)
  Receive Date: 20231124
  Receipt Date: 20240403
  Transmission Date: 20240716
  Serious: Yes (Life-Threatening, Hospitalization, Other)
  Sender: FDA-Public Use
  Company Number: CA-SA-SAC20231124000289

PATIENT
  Age: 16 Year
  Sex: Male
  Weight: 97 kg

DRUGS (9)
  1. ALEMTUZUMAB [Suspect]
     Active Substance: ALEMTUZUMAB
     Indication: Stem cell transplant
     Dosage: 9.5 MG, QD
     Route: 042
     Dates: start: 20230118, end: 20230121
  2. ALEMTUZUMAB [Suspect]
     Active Substance: ALEMTUZUMAB
     Dosage: 2.9 MG, QD
     Route: 042
     Dates: start: 20230117, end: 20230117
  3. TRANEXAMIC ACID [Suspect]
     Active Substance: TRANEXAMIC ACID
     Indication: Transplant
     Dosage: UNK, PRN
     Route: 048
     Dates: start: 20230122, end: 20230126
  4. SIROLIMUS [Suspect]
     Active Substance: SIROLIMUS
     Indication: Transplant
     Dosage: 5 MG, TID
     Route: 048
     Dates: start: 20230123, end: 20230123
  5. AMLODIPINE [Concomitant]
     Active Substance: AMLODIPINE BESYLATE
     Dosage: 5 MG, BID
     Route: 048
     Dates: start: 20230116, end: 20230220
  6. CHOLECALCIFEROL [Concomitant]
     Active Substance: CHOLECALCIFEROL
     Dosage: 1000 IU, QD
     Route: 048
     Dates: start: 20230116, end: 20230219
  7. FLUCONAZOLE [Concomitant]
     Active Substance: FLUCONAZOLE
     Dosage: 400 MG, QD
     Route: 042
     Dates: start: 20230121, end: 20230214
  8. FLUTICASONE [Concomitant]
     Active Substance: FLUTICASONE
     Dosage: 55 UG
     Dates: start: 20230116, end: 20230215
  9. LANSOPRAZOLE [Concomitant]
     Active Substance: LANSOPRAZOLE
     Dosage: 30 MG, BID
     Route: 048
     Dates: start: 20230128, end: 20230215

REACTIONS (3)
  - Sickle cell anaemia [Recovering/Resolving]
  - Aplastic anaemia [Recovering/Resolving]
  - Lymphocyte count decreased [Recovering/Resolving]

NARRATIVE: CASE EVENT DATE: 20230129
